FAERS Safety Report 11501384 (Version 8)
Quarter: 2017Q2

REPORT INFORMATION
  Report Type: Report from Study
  Country: AT (occurrence: AT)
  Receive Date: 20150914
  Receipt Date: 20170623
  Transmission Date: 20170829
  Serious: Yes (Hospitalization)
  Sender: FDA-Public Use
  Company Number: PHHO2015AT014059

PATIENT
  Age: 77 Year
  Sex: Female
  Weight: 89 kg

DRUGS (18)
  1. LBH589 [Suspect]
     Active Substance: PANOBINOSTAT
     Indication: PLASMA CELL MYELOMA
     Dosage: 20 MG, QD
     Route: 048
     Dates: start: 20150427, end: 20150829
  2. DEXAMETHASONE. [Suspect]
     Active Substance: DEXAMETHASONE
     Indication: PLASMA CELL MYELOMA
     Dosage: 20 MG, QD
     Route: 048
     Dates: start: 20150427, end: 20150819
  3. DEXAMETHASONE. [Suspect]
     Active Substance: DEXAMETHASONE
     Dosage: 20 MG, QD
     Route: 048
     Dates: end: 20151103
  4. PRIVIGEN [Concomitant]
     Active Substance: HUMAN IMMUNOGLOBULIN G
     Indication: PLASMA CELL MYELOMA
     Dosage: 10 G, QMO
     Route: 042
     Dates: start: 20150220
  5. ZOMETA [Concomitant]
     Active Substance: ZOLEDRONIC ACID
     Indication: POLYARTHRITIS
     Dosage: 4 MG, QMO
     Route: 042
     Dates: start: 20150122
  6. VITAMINS WITH MINERALS [Concomitant]
     Active Substance: MINERALS\VITAMINS
     Indication: OSTEOPOROSIS
     Dosage: 600 MG, BID
     Route: 048
     Dates: start: 2014
  7. FURADANTIN [Concomitant]
     Active Substance: NITROFURANTOIN
     Indication: INFECTION PROPHYLAXIS
     Dosage: 100 MG, TID (2-2-2)
     Route: 048
     Dates: start: 20150825
  8. OLEOVIT//COLECALCIFEROL-CHOLESTERIN [Concomitant]
     Indication: OSTEOPOROSIS
     Dosage: 30 PH ORAL 1 X 1 WEEK
     Route: 048
     Dates: start: 201502
  9. BORTEZOMIB [Suspect]
     Active Substance: BORTEZOMIB
     Indication: PLASMA CELL MYELOMA
     Dosage: 1.97 MG, QD
     Route: 058
     Dates: start: 20150427, end: 20150818
  10. BORTEZOMIB [Suspect]
     Active Substance: BORTEZOMIB
     Dosage: 1.97 MG, QD
     Route: 058
     Dates: end: 20151027
  11. EUSAPRIM [Concomitant]
     Active Substance: SULFAMETHOXAZOLE\TRIMETHOPRIM
     Indication: SINUSITIS
     Dosage: 160 MG, QD
     Route: 048
     Dates: start: 201411
  12. FAMVIR [Concomitant]
     Active Substance: FAMCICLOVIR
     Indication: INFECTION PROPHYLAXIS
     Dosage: 250 MG, BID
     Route: 048
     Dates: start: 20150427
  13. FOLSAN [Concomitant]
     Active Substance: FOLIC ACID
     Indication: FOLATE DEFICIENCY
     Dosage: 5 MG, QD
     Route: 048
     Dates: start: 20150612
  14. ELOCON [Concomitant]
     Active Substance: MOMETASONE FUROATE
     Indication: PRODUCT USED FOR UNKNOWN INDICATION
     Dosage: UNK
     Route: 061
     Dates: start: 20150619
  15. LBH589 [Suspect]
     Active Substance: PANOBINOSTAT
     Dosage: 20 MG, QD
     Route: 048
     Dates: end: 20151103
  16. REPARIL [Concomitant]
     Indication: DIVERTICULUM
     Dosage: 20 MG, TID
     Route: 048
     Dates: start: 2012
  17. NEURONTIN [Concomitant]
     Active Substance: GABAPENTIN
     Indication: POLYNEUROPATHY
     Dosage: 300 MG, TID
     Route: 048
     Dates: start: 2007
  18. OVESTIN [Concomitant]
     Active Substance: ESTRIOL
     Indication: OESTROGEN THERAPY
     Dosage: 0.5 MG, 3X1 WEEK
     Route: 067
     Dates: start: 20150619

REACTIONS (3)
  - Chest pain [Recovered/Resolved]
  - Back pain [Recovered/Resolved with Sequelae]
  - Atrial fibrillation [Recovered/Resolved]

NARRATIVE: CASE EVENT DATE: 20150907
